FAERS Safety Report 9319271 (Version 2)
Quarter: 2013Q3

REPORT INFORMATION
  Report Type: Report from Study
  Country: AU (occurrence: AU)
  Receive Date: 20130530
  Receipt Date: 20130716
  Transmission Date: 20140515
  Serious: Yes (Other)
  Sender: FDA-Public Use
  Company Number: PHHY2013AU054504

PATIENT
  Sex: Female
  Weight: 86.9 kg

DRUGS (18)
  1. CLOZARIL [Suspect]
     Indication: SCHIZOPHRENIA
     Dosage: 100 MG, 2 NOCTE
     Dates: start: 200909
  2. VALPROIC ACID [Concomitant]
     Dosage: UNK
  3. NATURES OWN FISH OIL [Concomitant]
     Dosage: 450 MG, 2 MANE 1 NOCTE
  4. EPILIM [Concomitant]
     Dosage: 500 MG, 1 MANE 2 NOCTE
  5. EDRONAX [Concomitant]
     Dosage: 4 MG, BID
  6. ACTONEL COMBI D [Concomitant]
     Dosage: 35 MG, 1, 30 MIN AC ON SUNDAYS, REMAIN UPRIGHT FOR 30 MIN AFTER DOSE
  7. VITAMIN D3 [Concomitant]
     Dosage: 22 UG,DISSOLVE CONTENT OF ONE SACHET IN A GLASS OF WATER AND TAKE AECH MORNING ON MONDAY TO SATURDA
  8. CALCIUM [Concomitant]
     Dosage: 2500 MG, DISSOLVE CONTENT OF ONE SACHET IN A GLASS OF WATER AND TAKE AECH MORNING ON MONDAY TO SATUR
  9. XALATAN [Concomitant]
     Dosage: 50 UG/ML, UNK
  10. SERETIDE [Concomitant]
     Dosage: UNK UKN, BID
  11. ASMOL [Concomitant]
     Dosage: 100 UG, 2 PUFFS Q4H PM
  12. NATURES OWN GLUCOSAMINE SULFATE [Concomitant]
     Dosage: 1500 MG, BID
  13. MAGNESIUM [Concomitant]
     Dosage: 115.9 MG, UNK
  14. BEROCCA [Concomitant]
     Dosage: UNK 1 MANE
  15. PANAMAX [Concomitant]
     Indication: BACK PAIN
     Dosage: 500 MG, UNK
  16. PANADOL OSTEO [Concomitant]
     Dosage: 650 MG, 2 MANE
  17. BENEFIBER [Concomitant]
     Dosage: UNK DAILY
  18. SENNOKOTT [Concomitant]
     Dosage: 7.5 MG, 2 COUPLE OF DAYS PER WEEK

REACTIONS (2)
  - Renal failure chronic [Unknown]
  - Platelet count decreased [Not Recovered/Not Resolved]
